FAERS Safety Report 8219546-3 (Version None)
Quarter: 2012Q1

REPORT INFORMATION
  Report Type: 
  Country: None (occurrence: None)
  Receive Date: 20120319
  Receipt Date: 20120307
  Transmission Date: 20120608
  Serious: Yes (Hospitalization, Other)
  Sender: FDA-Public Use
  Company Number: FR-BRISTOL-MYERS SQUIBB COMPANY-16459596

PATIENT
  Age: 68 Year
  Sex: Male

DRUGS (6)
  1. ERBITUX [Suspect]
     Indication: COLORECTAL CANCER METASTATIC
     Dosage: COURSES:10
     Route: 042
     Dates: start: 20110701, end: 20120101
  2. LEUCOVORIN CALCIUM [Suspect]
     Indication: COLORECTAL CANCER METASTATIC
     Dosage: COURSES:15
     Route: 042
     Dates: start: 20110401, end: 20120101
  3. IRINOTECAN HCL [Suspect]
     Indication: COLORECTAL CANCER METASTATIC
     Dosage: COURSES:15
     Route: 042
     Dates: start: 20110401, end: 20120101
  4. AVASTIN [Suspect]
     Indication: COLORECTAL CANCER METASTATIC
     Dosage: COURSES:5
     Route: 042
     Dates: start: 20110401, end: 20110701
  5. FLUOROURACIL [Suspect]
     Indication: COLORECTAL CANCER METASTATIC
     Dosage: COURSES:15
     Route: 042
     Dates: start: 20110401, end: 20120101
  6. OXALIPLATIN [Suspect]
     Indication: COLORECTAL CANCER METASTATIC
     Dosage: COURSES:2
     Route: 013
     Dates: start: 20111101, end: 20111201

REACTIONS (7)
  - OSTEOLYSIS [None]
  - PARONYCHIA [None]
  - FOLLICULITIS [None]
  - LYMPHANGITIS [None]
  - OSTEITIS [None]
  - SKIN FISSURES [None]
  - OEDEMA PERIPHERAL [None]
